FAERS Safety Report 4737101-4 (Version None)
Quarter: 2005Q3

REPORT INFORMATION
  Report Type: 
  Country: None (occurrence: None)
  Receive Date: 20050804
  Receipt Date: 20050720
  Transmission Date: 20060218
  Serious: Yes (Other)
  Sender: FDA-Public Use
  Company Number: MAG-2005-0000382

PATIENT
  Age: 79 Year
  Sex: Male

DRUGS (3)
  1. MORPHINE [Suspect]
     Dosage: 20 MG, DAILY, ORAL
     Route: 048
     Dates: start: 20020520
  2. LEUCOVORIN CALCIUM [Concomitant]
  3. FLUOROURACIL [Concomitant]

REACTIONS (10)
  - ACIDOSIS [None]
  - BACILLUS INFECTION [None]
  - CARDIOVASCULAR DISORDER [None]
  - COLITIS [None]
  - CONSTIPATION [None]
  - DIARRHOEA [None]
  - GASTROINTESTINAL NECROSIS [None]
  - PYREXIA [None]
  - SHOCK [None]
  - VOMITING [None]
